FAERS Safety Report 16574931 (Version 1)
Quarter: 2019Q3

REPORT INFORMATION
  Report Type: Spontaneous
  Country: CN (occurrence: CN)
  Receive Date: 20190715
  Receipt Date: 20190715
  Transmission Date: 20191004
  Serious: Yes (Other)
  Sender: FDA-Public Use
  Company Number: CN-BAXTER-2019BAX013469

PATIENT
  Age: 46 Year
  Sex: Female
  Weight: 53 kg

DRUGS (9)
  1. 0.9% SODIUM CHLORIDE INJECTION [Suspect]
     Active Substance: SODIUM CHLORIDE
     Indication: MEDICATION DILUTION
     Dosage: SOLVENT FOR CEFONICID
     Route: 065
     Dates: start: 20190628, end: 20190628
  2. INVERTED GLUCOSE [Suspect]
     Active Substance: INVERT SUGAR
     Indication: PRODUCT USED FOR UNKNOWN INDICATION
     Route: 065
     Dates: start: 20190628, end: 20190628
  3. 0.9% SODIUM CHLORIDE INJECTION [Suspect]
     Active Substance: SODIUM CHLORIDE
     Dosage: SOLVENT FOR CARBAZOCHROME SODIUM SULFONATE
     Route: 065
     Dates: start: 20190628, end: 20190628
  4. 0.9% SODIUM CHLORIDE INJECTION [Suspect]
     Active Substance: SODIUM CHLORIDE
     Dosage: SOLVENT FOR PANTOPRAZOLE SODIUM
     Route: 065
     Dates: start: 20190628, end: 20190628
  5. CEFONICID [Suspect]
     Active Substance: CEFONICID
     Indication: PRODUCT USED FOR UNKNOWN INDICATION
     Dosage: DOSE: 1 (UNIT NOT REPORTED)
     Route: 065
     Dates: start: 20190628, end: 20190628
  6. PANTOPRAZOLE SODIUM. [Suspect]
     Active Substance: PANTOPRAZOLE SODIUM
     Indication: PRODUCT USED FOR UNKNOWN INDICATION
     Route: 065
     Dates: start: 20190628, end: 20190628
  7. ELECTROLYTE (CALCIUM GLUCONATE\MAGNESIUM CARBONATE\POTASSIUM CHLORIDE\SODIUM CHLORIDE) [Suspect]
     Active Substance: CALCIUM GLUCONATE\MAGNESIUM CARBONATE\POTASSIUM CHLORIDE\SODIUM CHLORIDE
     Indication: PRODUCT USED FOR UNKNOWN INDICATION
     Route: 065
     Dates: start: 20190628, end: 20190628
  8. CARBAZOCHROME SODIUM SULFONATE [Suspect]
     Active Substance: CARBAZOCHROME SODIUM SULFONATE
     Indication: PRODUCT USED FOR UNKNOWN INDICATION
     Route: 065
     Dates: start: 20190628, end: 20190628
  9. METRONIDAZOLE AND SODIUM CHLORIDE INJECTION [Suspect]
     Active Substance: METRONIDAZOLE\SODIUM CHLORIDE
     Indication: SUPPORTIVE CARE
     Route: 041
     Dates: start: 20190628, end: 20190628

REACTIONS (3)
  - Chills [Recovering/Resolving]
  - Chest discomfort [Recovering/Resolving]
  - Hyperpyrexia [Recovering/Resolving]

NARRATIVE: CASE EVENT DATE: 20190628
